FAERS Safety Report 7274805-6 (Version None)
Quarter: 2011Q1

REPORT INFORMATION
  Report Type: 
  Country: None (occurrence: None)
  Receive Date: 20110204
  Receipt Date: 20110128
  Transmission Date: 20110831
  Serious: Yes (Hospitalization)
  Sender: FDA-Public Use
  Company Number: US-SANOFI-AVENTIS-2011SA004251

PATIENT
  Sex: Female

DRUGS (4)
  1. DIGOXIN [Concomitant]
  2. MULTAQ [Suspect]
     Indication: ATRIAL FIBRILLATION
     Route: 048
     Dates: start: 20101213, end: 20101219
  3. WARFARIN SODIUM [Concomitant]
  4. DILTIAZEM [Concomitant]

REACTIONS (6)
  - DRUG INEFFECTIVE [None]
  - DYSPNOEA [None]
  - CARDIAC FAILURE CONGESTIVE [None]
  - PRODUCTIVE COUGH [None]
  - ATRIAL FIBRILLATION [None]
  - SWELLING [None]
